FAERS Safety Report 7518522-3 (Version None)
Quarter: 2011Q2

REPORT INFORMATION
  Report Type: 
  Country: None (occurrence: None)
  Receive Date: 20110602
  Receipt Date: 20110517
  Transmission Date: 20111010
  Serious: No
  Sender: FDA-Public Use
  Company Number: US-B.I. PHARMACEUTICALS,INC./RIDGEFIELD-2011-BP-13333BP

PATIENT
  Sex: Male

DRUGS (10)
  1. COREG [Concomitant]
     Indication: CARDIAC DISORDER
     Dosage: 25 MG
     Route: 048
  2. COREG [Concomitant]
     Indication: HYPERTENSION
  3. LEVOXYL [Concomitant]
     Indication: THYROID DISORDER
     Dosage: 100 MG
     Route: 048
  4. LISINOPRIL [Concomitant]
     Indication: CARDIAC DISORDER
     Dosage: 10 MG
     Route: 048
  5. ISOSORBIDE DINITRATE [Concomitant]
     Indication: CARDIAC DISORDER
     Dosage: 60 MG
     Route: 048
  6. NITROGLYCERIN [Concomitant]
     Indication: CHEST PAIN
     Dosage: 0.4 MG
     Route: 048
  7. NAPROXEN (ALEVE) [Suspect]
     Indication: ARTHRITIS
     Route: 048
     Dates: end: 20110512
  8. FUROSEMIDE [Concomitant]
     Indication: FLUID RETENTION
     Dosage: 120 MG
     Route: 048
  9. PRADAXA [Suspect]
     Indication: ATRIAL FIBRILLATION
     Dosage: 300 MG
     Route: 048
     Dates: start: 20110505
  10. FISH OIL [Concomitant]
     Indication: PROPHYLAXIS
     Dosage: 2400 MG
     Route: 048

REACTIONS (3)
  - CONSTIPATION [None]
  - MELAENA [None]
  - RECTAL HAEMORRHAGE [None]
